FAERS Safety Report 5153996-7 (Version None)
Quarter: 2006Q4

REPORT INFORMATION
  Report Type: 
  Country: None (occurrence: None)
  Receive Date: 20061120
  Receipt Date: 20061117
  Transmission Date: 20070319
  Serious: Yes (Hospitalization)
  Sender: FDA-Public Use
  Company Number: US-GLAXOSMITHKLINE-A0627973A

PATIENT
  Sex: Female

DRUGS (1)
  1. REQUIP [Suspect]
     Route: 048

REACTIONS (3)
  - ANOREXIA [None]
  - GASTRIC DISORDER [None]
  - VOMITING [None]
